FAERS Safety Report 14507558 (Version 1)
Quarter: 2018Q1

REPORT INFORMATION
  Report Type: Spontaneous
  Country: US (occurrence: US)
  Receive Date: 20180208
  Receipt Date: 20180208
  Transmission Date: 20180509
  Serious: No
  Sender: FDA-Public Use
  Company Number: US-009507513-1802USA003334

PATIENT
  Age: 68 Year
  Sex: Female

DRUGS (12)
  1. TIMOLOL MALEATE. [Concomitant]
     Active Substance: TIMOLOL MALEATE
  2. FOLIC ACID. [Concomitant]
     Active Substance: FOLIC ACID
  3. FORTEO [Concomitant]
     Active Substance: TERIPARATIDE
  4. BYSTOLIC [Concomitant]
     Active Substance: NEBIVOLOL HYDROCHLORIDE
  5. OTEZLA [Concomitant]
     Active Substance: APREMILAST
  6. PEGINTRON [Suspect]
     Active Substance: PEGINTERFERON ALFA-2B
     Indication: POLYCYTHAEMIA VERA
     Dosage: 50 MICROGRAM, ONCE WEEKLY
     Dates: start: 20180115
  7. TRAVATAN [Concomitant]
     Active Substance: TRAVOPROST
  8. REMICADE [Concomitant]
     Active Substance: INFLIXIMAB
  9. CELEBREX [Concomitant]
     Active Substance: CELECOXIB
  10. PRINIVIL [Concomitant]
     Active Substance: LISINOPRIL
  11. ACYCLOVIR. [Concomitant]
     Active Substance: ACYCLOVIR
  12. PREDNISONE. [Concomitant]
     Active Substance: PREDNISONE

REACTIONS (2)
  - Rash [Not Recovered/Not Resolved]
  - Adverse event [Unknown]

NARRATIVE: CASE EVENT DATE: 2018
